FAERS Safety Report 20807190 (Version 3)
Quarter: 2022Q2

REPORT INFORMATION
  Report Type: Spontaneous
  Country: US (occurrence: US)
  Receive Date: 20220510
  Receipt Date: 20220610
  Transmission Date: 20220721
  Serious: Yes (Hospitalization, Other)
  Sender: FDA-Public Use
  Company Number: US-AMGEN-USASP2022077317

PATIENT
  Age: 18 Year
  Sex: Male
  Weight: 100 kg

DRUGS (2)
  1. BLINCYTO [Suspect]
     Active Substance: BLINATUMOMAB
     Indication: B precursor type acute leukaemia
     Dosage: 15 MICROGRAM
     Route: 042
     Dates: start: 20220412, end: 20220414
  2. BLINCYTO [Suspect]
     Active Substance: BLINATUMOMAB
     Dosage: 5 MICROGRAM/M2/QD (MAX DOSE OF 9 MCGLDAY)
     Route: 042
     Dates: start: 20220419

REACTIONS (7)
  - Nervous system disorder [Unknown]
  - Muscle twitching [Unknown]
  - Flat affect [Unknown]
  - Urinary incontinence [Unknown]
  - Generalised tonic-clonic seizure [Recovered/Resolved]
  - Tremor [Unknown]
  - Pyrexia [Unknown]

NARRATIVE: CASE EVENT DATE: 20220413
